FAERS Safety Report 13048438 (Version 4)
Quarter: 2018Q2

REPORT INFORMATION
  Report Type: Report from Study
  Country: AT (occurrence: AT)
  Receive Date: 20161221
  Receipt Date: 20180425
  Transmission Date: 20180711
  Serious: Yes (Other)
  Sender: FDA-Public Use
  Company Number: PHHY2016AT175036

PATIENT
  Age: 37 Year
  Sex: Male

DRUGS (5)
  1. SIGNIFOR LAR [Suspect]
     Active Substance: PASIREOTIDE
     Dosage: 60 MG, QMO (EVERY FOUR WEEKS)
     Route: 065
     Dates: start: 201509
  2. SIGNIFOR LAR [Suspect]
     Active Substance: PASIREOTIDE
     Dosage: 40 MG, QMO (EVERY FOUR WEEKS)
     Route: 065
     Dates: start: 201505
  3. THYREX [Concomitant]
     Active Substance: LEVOTHYROXINE SODIUM
     Indication: THYROID DISORDER
     Dosage: 100 UG, UNK
     Route: 048
     Dates: start: 201601
  4. SIGNIFOR LAR [Suspect]
     Active Substance: PASIREOTIDE
     Indication: ACROMEGALY
     Dosage: 20 MG, QMO (EVERY FOUR WEEKS)
     Route: 065
     Dates: start: 201502
  5. THYREX [Concomitant]
     Active Substance: LEVOTHYROXINE SODIUM
     Indication: HYPERPARATHYROIDISM SECONDARY
     Dosage: 75 UG, UNK
     Route: 048
     Dates: start: 2013

REACTIONS (2)
  - Leukopenia [Unknown]
  - Leukopenia [Recovered/Resolved]

NARRATIVE: CASE EVENT DATE: 20150716
